FAERS Safety Report 17995269 (Version 1)
Quarter: 2020Q3

REPORT INFORMATION
  Report Type: Spontaneous
  Country: US (occurrence: US)
  Receive Date: 20200708
  Receipt Date: 20200708
  Transmission Date: 20201103
  Serious: No
  Sender: FDA-Public Use
  Company Number: None

PATIENT
  Age: 38 Year
  Sex: Male

DRUGS (1)
  1. OXCARBAZEPINE. [Suspect]
     Active Substance: OXCARBAZEPINE
     Dates: start: 20190508, end: 20190517

REACTIONS (2)
  - Blood sodium decreased [None]
  - Neutrophil count decreased [None]

NARRATIVE: CASE EVENT DATE: 20190508
